FAERS Safety Report 9363019 (Version 1)
Quarter: 2013Q2

REPORT INFORMATION
  Report Type: Spontaneous
  Country: US (occurrence: None)
  Receive Date: 20130621
  Receipt Date: 20130621
  Transmission Date: 20140414
  Serious: Yes (Hospitalization)
  Sender: FDA-Public Use
  Company Number: None

PATIENT
  Age: 72 Year
  Sex: Male
  Weight: 94.4 kg

DRUGS (3)
  1. CYTARABINE [Suspect]
  2. IDARUBICIN [Suspect]
  3. PRAVASTATIN SODIUM [Suspect]

REACTIONS (7)
  - Pyrexia [None]
  - Hypotension [None]
  - Respiratory distress [None]
  - Tachycardia [None]
  - Hypoxia [None]
  - Lactic acidosis [None]
  - Septic shock [None]
